FAERS Safety Report 6191501-7 (Version None)
Quarter: 2009Q2

REPORT INFORMATION
  Report Type: 
  Country: None (occurrence: None)
  Receive Date: 20090515
  Receipt Date: 20071002
  Transmission Date: 20091009
  Serious: Yes (Hospitalization)
  Sender: FDA-Public Use
  Company Number: US-ASTRAZENECA-2006UW22592

PATIENT
  Age: 8737 Day
  Sex: Female
  Weight: 56.7 kg

DRUGS (20)
  1. SEROQUEL [Suspect]
     Indication: SCHIZOPHRENIA
     Dosage: 350 MG - 600 MG
     Route: 048
     Dates: start: 20010101, end: 20050101
  2. SEROQUEL [Suspect]
     Indication: DEPRESSION
     Dosage: 350 MG - 600 MG
     Route: 048
     Dates: start: 20010101, end: 20050101
  3. SEROQUEL [Suspect]
     Indication: BIPOLAR DISORDER
     Dosage: 350 MG - 600 MG
     Route: 048
     Dates: start: 20010101, end: 20050101
  4. SEROQUEL [Suspect]
     Dosage: 50MG-1100MG
     Route: 048
     Dates: start: 20020919
  5. SEROQUEL [Suspect]
     Dosage: 50MG-1100MG
     Route: 048
     Dates: start: 20020919
  6. SEROQUEL [Suspect]
     Dosage: 50MG-1100MG
     Route: 048
     Dates: start: 20020919
  7. GLUCOPHAGE [Concomitant]
     Dosage: 1000MG-2000MG
     Route: 048
     Dates: start: 20040705
  8. GLYBURIDE [Concomitant]
     Dosage: 2.5-15MG
     Route: 048
     Dates: start: 20040705
  9. ALBUTEROL [Concomitant]
     Route: 055
  10. ZOLOFT [Concomitant]
     Dosage: 50-400MG
     Route: 048
  11. REGLAN [Concomitant]
     Dosage: 12-24MG
     Route: 048
  12. NAPROSYN [Concomitant]
     Dosage: 500-1000MG
     Route: 048
  13. FLEXERIL [Concomitant]
     Route: 048
  14. LISINOPRIL [Concomitant]
     Route: 048
  15. FERGON [Concomitant]
     Route: 048
  16. HYDROCHLOROTHIAZIDE [Concomitant]
     Route: 048
  17. PREVACID [Concomitant]
     Route: 048
  18. FIORICET [Concomitant]
     Route: 048
  19. PAXIL [Concomitant]
     Route: 048
  20. DEPAKOTE [Concomitant]
     Dosage: 250-2000MG
     Route: 048

REACTIONS (13)
  - ANAEMIA [None]
  - BACK PAIN [None]
  - DIABETES MELLITUS [None]
  - DIABETIC KETOACIDOSIS [None]
  - DRUG DEPENDENCE [None]
  - ENTERITIS [None]
  - HEADACHE [None]
  - HYPOGLYCAEMIA [None]
  - NICOTINE DEPENDENCE [None]
  - POST-TRAUMATIC STRESS DISORDER [None]
  - SCHIZOAFFECTIVE DISORDER BIPOLAR TYPE [None]
  - SUICIDAL IDEATION [None]
  - VAGINITIS BACTERIAL [None]
